FAERS Safety Report 12468392 (Version 1)
Quarter: 2016Q2

REPORT INFORMATION
  Report Type: Report from Study
  Country: NL (occurrence: NL)
  Receive Date: 20160615
  Receipt Date: 20160615
  Transmission Date: 20160815
  Serious: Yes (Hospitalization)
  Sender: FDA-Public Use
  Company Number: NL-AMGEN-NLDSL2016074983

PATIENT
  Age: 49 Year
  Sex: Female

DRUGS (2)
  1. XGEVA [Suspect]
     Active Substance: DENOSUMAB
     Indication: PROPHYLAXIS
     Dosage: 120 MG (1.7 ML), Q4WK
     Route: 058
  2. XGEVA [Suspect]
     Active Substance: DENOSUMAB
     Dosage: UNK
     Route: 058

REACTIONS (6)
  - Colonoscopy [Unknown]
  - Post procedural complication [Unknown]
  - Liver disorder [Not Recovered/Not Resolved]
  - Pruritus [Unknown]
  - Biliary tract disorder [Not Recovered/Not Resolved]
  - Vascular injury [Unknown]

NARRATIVE: CASE EVENT DATE: 20160511
